FAERS Safety Report 7698696-4 (Version None)
Quarter: 2011Q3

REPORT INFORMATION
  Report Type: 
  Country: None (occurrence: None)
  Receive Date: 20110819
  Receipt Date: 20110804
  Transmission Date: 20111222
  Serious: Yes (Hospitalization)
  Sender: FDA-Public Use
  Company Number: GB-ARROW GEN-2011-12953

PATIENT
  Age: 14 Month
  Sex: Male

DRUGS (1)
  1. TACROLIMUS [Suspect]
     Indication: PROPHYLAXIS AGAINST TRANSPLANT REJECTION
     Dosage: UNK

REACTIONS (7)
  - DRUG LEVEL INCREASED [None]
  - RESPIRATORY FAILURE [None]
  - RENAL FAILURE [None]
  - ELECTROENCEPHALOGRAM ABNORMAL [None]
  - PUPIL FIXED [None]
  - BRAIN OEDEMA [None]
  - CARDIAC FAILURE [None]
